FAERS Safety Report 8614608-0 (Version None)
Quarter: 2012Q3

REPORT INFORMATION
  Report Type: 
  Country: None (occurrence: None)
  Receive Date: 20120823
  Receipt Date: 20120816
  Transmission Date: 20120928
  Serious: Yes (Hospitalization, Other)
  Sender: FDA-Public Use
  Company Number: CN-ASTELLAS-2012US007119

PATIENT
  Sex: Male

DRUGS (1)
  1. TARCEVA [Suspect]
     Indication: LUNG NEOPLASM MALIGNANT
     Dosage: 150 MG, UID/QD
     Route: 048
     Dates: start: 20110210, end: 20110216

REACTIONS (5)
  - PLATELET COUNT DECREASED [None]
  - TACHYCARDIA [None]
  - FATIGUE [None]
  - EPISTAXIS [None]
  - DECREASED APPETITE [None]
